FAERS Safety Report 11877002 (Version 1)
Quarter: 2015Q4

REPORT INFORMATION
  Report Type: Spontaneous
  Country: US (occurrence: US)
  Receive Date: 20151229
  Receipt Date: 20151229
  Transmission Date: 20160305
  Serious: Yes (Hospitalization)
  Sender: FDA-Public Use
  Company Number: US-ELI_LILLY_AND_COMPANY-US201512006302

PATIENT
  Sex: Male

DRUGS (3)
  1. METFORMIN [Concomitant]
     Active Substance: METFORMIN HYDROCHLORIDE
  2. HUMULIN N [Suspect]
     Active Substance: INSULIN HUMAN
     Indication: TYPE 2 DIABETES MELLITUS
     Dosage: UNK, UNKNOWN
     Route: 065
     Dates: start: 2008
  3. GLIPIZDE [Concomitant]

REACTIONS (8)
  - Sinus disorder [Unknown]
  - Hypersensitivity [Not Recovered/Not Resolved]
  - Ear infection [Unknown]
  - Pulmonary physical examination abnormal [Unknown]
  - Staphylococcal infection [Unknown]
  - Nasopharyngitis [Unknown]
  - Immune system disorder [Unknown]
  - Sneezing [Unknown]
